FAERS Safety Report 8474385-3 (Version None)
Quarter: 2012Q2

REPORT INFORMATION
  Report Type: 
  Country: None (occurrence: None)
  Receive Date: 20120628
  Receipt Date: 20120316
  Transmission Date: 20120825
  Serious: Yes (Other)
  Sender: FDA-Public Use
  Company Number: US-MYLANLABS-2012S1004639

PATIENT
  Age: 20 Year
  Sex: Female
  Weight: 114.31 kg

DRUGS (6)
  1. CLOZAPINE [Suspect]
     Indication: SCHIZOAFFECTIVE DISORDER
     Route: 048
     Dates: end: 20120227
  2. CLOZAPINE [Suspect]
     Route: 048
     Dates: start: 20120229
  3. ORTHO TRI-CYCLEN [Concomitant]
  4. CLOZAPINE [Suspect]
     Route: 048
     Dates: start: 20120229
  5. MIRALAX /00754501/ [Concomitant]
  6. CLOZAPINE [Suspect]
     Route: 048
     Dates: end: 20120227

REACTIONS (1)
  - GRANULOCYTOPENIA [None]
